FAERS Safety Report 22201189 (Version 2)
Quarter: 2023Q2

REPORT INFORMATION
  Report Type: Report from Study
  Country: US (occurrence: US)
  Receive Date: 20230412
  Receipt Date: 20230516
  Transmission Date: 20230721
  Serious: Yes (Other)
  Sender: FDA-Public Use
  Company Number: US-SA-SAC20230411001105

PATIENT
  Age: 67 Year
  Sex: Female

DRUGS (1)
  1. TERIFLUNOMIDE [Suspect]
     Active Substance: TERIFLUNOMIDE
     Indication: Multiple sclerosis
     Dosage: UNK
     Route: 048

REACTIONS (20)
  - Breast cancer female [Recovering/Resolving]
  - Malignant melanoma in situ [Recovering/Resolving]
  - Immunodeficiency [Recovering/Resolving]
  - Rhinitis allergic [Recovering/Resolving]
  - Anaemia [Recovering/Resolving]
  - Depression [Recovering/Resolving]
  - Fatigue [Recovering/Resolving]
  - Gastrooesophageal reflux disease [Recovering/Resolving]
  - Insomnia [Recovering/Resolving]
  - Osteoarthritis [Recovering/Resolving]
  - Lumbar radiculopathy [Recovering/Resolving]
  - Neck pain [Recovering/Resolving]
  - Osteopenia [Recovering/Resolving]
  - Urinary tract infection [Recovering/Resolving]
  - Trigeminal neuralgia [Recovering/Resolving]
  - Foot deformity [Recovering/Resolving]
  - Tendon rupture [Recovering/Resolving]
  - Hypercholesterolaemia [Recovering/Resolving]
  - Paraesthesia [Recovering/Resolving]
  - Arthralgia [Recovering/Resolving]

NARRATIVE: CASE EVENT DATE: 20230403
